FAERS Safety Report 4599219-9 (Version None)
Quarter: 2005Q1

REPORT INFORMATION
  Report Type: 
  Country: None (occurrence: None)
  Receive Date: 20050127
  Receipt Date: 20041027
  Transmission Date: 20050727
  Serious: No
  Sender: FDA-Public Use
  Company Number: USA041082463

PATIENT
  Age: 9 Year
  Sex: Male
  Weight: 45 kg

DRUGS (2)
  1. STRATTERA [Suspect]
     Indication: ATTENTION DEFICIT/HYPERACTIVITY DISORDER
     Dates: start: 20040901
  2. CONCERTA [Concomitant]

REACTIONS (3)
  - ABNORMAL BEHAVIOUR [None]
  - CRYING [None]
  - NERVOUSNESS [None]
